FAERS Safety Report 11922357 (Version 1)
Quarter: 2016Q1

REPORT INFORMATION
  Report Type: Other
  Country: IR (occurrence: IR)
  Receive Date: 20160115
  Receipt Date: 20160115
  Transmission Date: 20160526
  Serious: Yes (Other)
  Sender: FDA-Public Use
  Company Number: IR-NSR_02307_2016

PATIENT
  Age: 4 Year
  Sex: Female

DRUGS (1)
  1. METOCLOPRAMIDE. [Suspect]
     Active Substance: METOCLOPRAMIDE
     Indication: PRODUCT USED FOR UNKNOWN INDICATION
     Dosage: DF

REACTIONS (6)
  - Gait disturbance [Unknown]
  - Sciatic nerve palsy [Unknown]
  - Pain in extremity [Unknown]
  - Muscular weakness [Unknown]
  - Hyporeflexia [Unknown]
  - Peroneal nerve palsy [Unknown]
